FAERS Safety Report 6648185-0 (Version None)
Quarter: 2010Q1

REPORT INFORMATION
  Report Type: 
  Country: None (occurrence: None)
  Receive Date: 20100324
  Receipt Date: 20100318
  Transmission Date: 20100710
  Serious: Yes (Other)
  Sender: FDA-Public Use
  Company Number: CHPA2010US04865

PATIENT
  Age: 28 Year
  Sex: Female
  Weight: 61.224 kg

DRUGS (2)
  1. GAS-X (NCH) [Suspect]
     Indication: FLATULENCE
     Dosage: 62.5 MG, ONCE/SINGLE
     Route: 048
     Dates: start: 20100309, end: 20100309
  2. GAS-X (NCH) [Suspect]
     Indication: ABDOMINAL DISTENSION
     Dosage: UNK, UNK
     Route: 048

REACTIONS (7)
  - CORNEAL REFLEX DECREASED [None]
  - DRUG EXPOSURE DURING PREGNANCY [None]
  - DRY EYE [None]
  - FACIAL PALSY [None]
  - ORAL DISCOMFORT [None]
  - OROPHARYNGEAL BLISTERING [None]
  - TONGUE BLISTERING [None]
